FAERS Safety Report 15698740 (Version 1)
Quarter: 2018Q4

REPORT INFORMATION
  Report Type: Spontaneous
  Country: GB (occurrence: GB)
  Receive Date: 20181207
  Receipt Date: 20181207
  Transmission Date: 20190205
  Serious: Yes (Hospitalization, Disabling)
  Sender: FDA-Public Use
  Company Number: GB-TEVA-2018-GB-983700

PATIENT
  Age: 48 Year
  Sex: Female
  Weight: 60.32 kg

DRUGS (1)
  1. CIPROFLOXACIN HYDROCHLORIDE. [Suspect]
     Active Substance: CIPROFLOXACIN HYDROCHLORIDE
     Indication: URINARY TRACT INFECTION
     Dosage: 500 MILLIGRAM DAILY;
     Route: 048
     Dates: start: 20180726, end: 20180727

REACTIONS (2)
  - Joint swelling [Recovered/Resolved with Sequelae]
  - Rash [Recovered/Resolved with Sequelae]

NARRATIVE: CASE EVENT DATE: 20180726
